FAERS Safety Report 23842936 (Version 1)
Quarter: 2024Q2

REPORT INFORMATION
  Report Type: Spontaneous
  Country: DE (occurrence: DE)
  Receive Date: 20240510
  Receipt Date: 20240510
  Transmission Date: 20240716
  Serious: Yes (Other)
  Sender: FDA-Public Use
  Company Number: DE-TEVA-VS-3195146

PATIENT
  Age: 74 Year
  Sex: Male

DRUGS (5)
  1. SPIRONOLACTONE [Suspect]
     Active Substance: SPIRONOLACTONE
     Indication: Myocardial infarction
     Dosage: 1/2-0-0
     Route: 065
     Dates: start: 2023, end: 20240412
  2. ENTRESTO [Concomitant]
     Active Substance: SACUBITRIL\VALSARTAN
  3. DAPAGLIFLOZIN [Concomitant]
     Active Substance: DAPAGLIFLOZIN
  4. ELIQUIS [Concomitant]
     Active Substance: APIXABAN
  5. FEBUXOSTAT [Concomitant]
     Active Substance: FEBUXOSTAT

REACTIONS (7)
  - Breast enlargement [Not Recovered/Not Resolved]
  - Balance disorder [Not Recovered/Not Resolved]
  - Polyneuropathy [Unknown]
  - Dizziness [Unknown]
  - Movement disorder [Unknown]
  - Gait disturbance [Not Recovered/Not Resolved]
  - Hypotension [Recovered/Resolved]
